FAERS Safety Report 5594302-3 (Version None)
Quarter: 2008Q1

REPORT INFORMATION
  Report Type: 
  Country: None (occurrence: None)
  Receive Date: 20080117
  Receipt Date: 20080109
  Transmission Date: 20080703
  Serious: Yes (Other)
  Sender: FDA-Public Use
  Company Number: PHEH2008US00843

PATIENT
  Age: 80 Year
  Sex: Male

DRUGS (1)
  1. DIOVAN HCT [Suspect]

REACTIONS (3)
  - BLOOD UREA INCREASED [None]
  - DIABETES MELLITUS [None]
  - HYPERKALAEMIA [None]
